FAERS Safety Report 21938458 (Version 1)
Quarter: 2023Q1

REPORT INFORMATION
  Report Type: Spontaneous
  Country: US (occurrence: US)
  Receive Date: 20230201
  Receipt Date: 20230201
  Transmission Date: 20230418
  Serious: No
  Sender: FDA-Public Use
  Company Number: US-RVL_Pharmaceuticals-USA-POI1255202200382

PATIENT
  Age: 68 Year
  Sex: Female
  Weight: 61.971 kg

DRUGS (10)
  1. UPNEEQ [Suspect]
     Active Substance: OXYMETAZOLINE HYDROCHLORIDE
     Indication: Eyelid ptosis
     Dosage: OS
     Route: 047
     Dates: start: 202207, end: 202211
  2. ATORVASTATIN [Concomitant]
     Active Substance: ATORVASTATIN
     Indication: Product used for unknown indication
     Dates: start: 20221117
  3. PREMARIN [Concomitant]
     Active Substance: ESTROGENS, CONJUGATED
     Indication: Product used for unknown indication
     Dates: start: 20211103
  4. OXYCODONE [Concomitant]
     Active Substance: OXYCODONE
     Indication: Product used for unknown indication
  5. CYCLOBENZAPRINE HYDROCHLORIDE [Concomitant]
     Active Substance: CYCLOBENZAPRINE HYDROCHLORIDE
     Indication: Product used for unknown indication
     Dosage: ONE HALF TO 1 TABLET PRN
     Dates: start: 20211201
  6. BUFFERED VITAMIN C [Concomitant]
     Indication: Product used for unknown indication
     Dates: start: 20210415
  7. VITAMIN D3 [Concomitant]
     Active Substance: CHOLECALCIFEROL
     Indication: Product used for unknown indication
  8. VITAMIN C WITH VITAMIN E [Concomitant]
     Indication: Product used for unknown indication
     Dosage: 500-400 MG-UNIT
  9. VITAMIN B12 WITH FOLIC ACID [Concomitant]
     Indication: Product used for unknown indication
     Dosage: UNKNOWN
  10. DICLOFENAC WITH MISOPROSLOL [Concomitant]
     Indication: Intervertebral disc degeneration
     Dosage: 75 MG 200 MCG
     Dates: start: 20221121

REACTIONS (5)
  - Hordeolum [Recovering/Resolving]
  - Eyelid pain [Recovering/Resolving]
  - Granuloma skin [Recovering/Resolving]
  - Swelling of eyelid [Recovering/Resolving]
  - Eye pain [Recovering/Resolving]

NARRATIVE: CASE EVENT DATE: 20220701
